FAERS Safety Report 19948399 (Version 1)
Quarter: 2021Q4

REPORT INFORMATION
  Report Type: Report from Study
  Country: AU (occurrence: AU)
  Receive Date: 20211012
  Receipt Date: 20211012
  Transmission Date: 20220303
  Serious: Yes (Other)
  Sender: FDA-Public Use
  Company Number: AU-TAKEDA-2021TUS039594

PATIENT
  Sex: Female

DRUGS (7)
  1. VEDOLIZUMAB [Suspect]
     Active Substance: VEDOLIZUMAB
     Indication: Colitis ulcerative
     Dosage: 300 MILLIGRAM
     Route: 042
  2. VEDOLIZUMAB [Suspect]
     Active Substance: VEDOLIZUMAB
     Indication: Iron deficiency anaemia
  3. NORTRIPTYLINE [Concomitant]
     Active Substance: NORTRIPTYLINE
     Dosage: 10 MILLIGRAM, QD
     Route: 048
  4. PURINETHOL [Concomitant]
     Active Substance: MERCAPTOPURINE
     Dosage: 50 MILLIGRAM
     Route: 048
  5. MESALAMINE [Concomitant]
     Active Substance: MESALAMINE
     Dosage: 1.2 GRAM, BID
     Route: 065
  6. MEBEVERINE HYDROCHLORIDE [Concomitant]
     Active Substance: MEBEVERINE HYDROCHLORIDE
     Dosage: UNK
     Route: 065
  7. SODIUM CHLORIDE [Concomitant]
     Active Substance: SODIUM CHLORIDE
     Dosage: 1000 MILLIGRAM

REACTIONS (3)
  - Diarrhoea haemorrhagic [Unknown]
  - Headache [Unknown]
  - Off label use [Unknown]
